FAERS Safety Report 9566760 (Version 1)
Quarter: 2013Q3

REPORT INFORMATION
  Report Type: Spontaneous
  Country: US (occurrence: US)
  Receive Date: 20130930
  Receipt Date: 20130930
  Transmission Date: 20140515
  Serious: No
  Sender: FDA-Public Use
  Company Number: US-AMGEN-USASP2012077409

PATIENT
  Age: 52 Year
  Sex: Male
  Weight: 250 kg

DRUGS (10)
  1. ENBREL [Suspect]
     Indication: RHEUMATOID ARTHRITIS
     Dosage: 50 MG, ONCE A WEEK
     Route: 058
  2. XANAX [Concomitant]
     Dosage: 1 MG, UNK
  3. TRAMADOL HCL [Concomitant]
     Dosage: 50 MG, UNK
  4. METFORMIN [Concomitant]
     Dosage: 500 MG, UNK
  5. OMEPRAZOLE [Concomitant]
     Dosage: 10 MG, UNK
  6. SIMVASTATIN [Concomitant]
     Dosage: 10 MG, UNK
  7. LOSARTAN/HCT [Concomitant]
     Dosage: 100-12.5
  8. ALLOPURINOL [Concomitant]
     Dosage: 100 MG, UNK
  9. POTASSIUM [Concomitant]
     Dosage: 75 MG, UNK
  10. ASPIRIN BUFFERED [Concomitant]
     Dosage: 325 MG, UNK

REACTIONS (1)
  - Drug ineffective [Unknown]
